FAERS Safety Report 5248284-4 (Version None)
Quarter: 2007Q1

REPORT INFORMATION
  Report Type: 
  Country: None (occurrence: None)
  Receive Date: 20070222
  Receipt Date: 20070206
  Transmission Date: 20070707
  Serious: Yes (Hospitalization)
  Sender: FDA-Public Use
  Company Number: 236153

PATIENT
  Sex: Female
  Weight: 67 kg

DRUGS (1)
  1. XOLAIR [Suspect]
     Indication: DRUG USE FOR UNKNOWN INDICATION
     Dosage: 300 MG, Q4W

REACTIONS (3)
  - COUGH [None]
  - DIZZINESS [None]
  - RESPIRATORY DISORDER [None]
